FAERS Safety Report 8372315-6 (Version None)
Quarter: 2012Q2

REPORT INFORMATION
  Report Type: 
  Country: None (occurrence: None)
  Receive Date: 20120521
  Receipt Date: 20120516
  Transmission Date: 20120825
  Serious: No
  Sender: FDA-Public Use
  Company Number: US-PFIZER INC-2012119600

PATIENT
  Sex: Male

DRUGS (1)
  1. SPIRONOLACTONE [Suspect]
     Dosage: UNK

REACTIONS (3)
  - BLOOD FOLLICLE STIMULATING HORMONE INCREASED [None]
  - GYNAECOMASTIA [None]
  - BLOOD LUTEINISING HORMONE INCREASED [None]
